FAERS Safety Report 7270193-X (Version None)
Quarter: 2011Q1

REPORT INFORMATION
  Report Type: 
  Country: None (occurrence: None)
  Receive Date: 20110202
  Receipt Date: 20110120
  Transmission Date: 20110831
  Serious: Yes (Hospitalization, Other)
  Sender: FDA-Public Use
  Company Number: GB-ELI_LILLY_AND_COMPANY-GB201008007974

PATIENT
  Age: 28 Year
  Sex: Male
  Weight: 82.55 kg

DRUGS (3)
  1. ZYPREXA [Suspect]
     Indication: PSYCHOTIC DISORDER
     Dosage: 7.5 MG, UNKNOWN
     Route: 048
     Dates: start: 20100805, end: 20100814
  2. CITALOPRAM [Concomitant]
     Indication: DEPRESSION
     Dosage: 40 MG, UNKNOWN
     Route: 048
     Dates: start: 20100201
  3. CITALOPRAM [Concomitant]
     Dosage: 20 MG, UNK

REACTIONS (9)
  - TONGUE HAEMORRHAGE [None]
  - LOSS OF CONSCIOUSNESS [None]
  - PARAESTHESIA ORAL [None]
  - JOINT INJURY [None]
  - SOMNOLENCE [None]
  - DISORIENTATION [None]
  - CONFUSIONAL STATE [None]
  - CONVULSION [None]
  - TONGUE BITING [None]
